FAERS Safety Report 5152537-8 (Version None)
Quarter: 2006Q4

REPORT INFORMATION
  Report Type: 
  Country: None (occurrence: None)
  Receive Date: 20061109
  Receipt Date: 20061026
  Transmission Date: 20070319
  Serious: Yes (Other)
  Sender: FDA-Public Use
  Company Number: 2006SP005090

PATIENT
  Age: 63 Year
  Sex: Male
  Weight: 86 kg

DRUGS (5)
  1. PEGETRON (PEGINTERFERON ALFA-2B W/RIBAVIRIN) (PEGYLATED INTERFERON ALF [Suspect]
     Dosage: 50 MCG; SC, SEE IMAGE
     Route: 058
     Dates: start: 20060529, end: 20060817
  2. PEGETRON (PEGINTERFERON ALFA-2B W/RIBAVIRIN) (PEGYLATED INTERFERON ALF [Suspect]
     Dosage: 50 MCG; SC, SEE IMAGE
     Route: 058
     Dates: start: 20060529, end: 20060817
  3. ADVAIR (CON) [Concomitant]
  4. VENTOLIN (CON) [Concomitant]
  5. NAPROXEN (CON) [Concomitant]

REACTIONS (1)
  - OPTIC ISCHAEMIC NEUROPATHY [None]
